FAERS Safety Report 9991876 (Version 1)
Quarter: 2014Q1

REPORT INFORMATION
  Report Type: Spontaneous
  Country: CA (occurrence: CA)
  Receive Date: 20140310
  Receipt Date: 20140310
  Transmission Date: 20141002
  Serious: Yes (Hospitalization)
  Sender: FDA-Public Use
  Company Number: CA-B.I. PHARMACEUTICALS,INC./RIDGEFIELD-2014-BI-09627CN

PATIENT
  Age: 5 Decade
  Sex: Female

DRUGS (1)
  1. TRAJENTA [Suspect]
     Indication: DIABETES MELLITUS
     Route: 065

REACTIONS (1)
  - Pancreatitis [Unknown]
